FAERS Safety Report 9719242 (Version 2)
Quarter: 2013Q4

REPORT INFORMATION
  Report Type: Report from Study
  Country: BE (occurrence: BE)
  Receive Date: 20131127
  Receipt Date: 20131127
  Transmission Date: 20140711
  Serious: Yes (Hospitalization, Other)
  Sender: FDA-Public Use
  Company Number: PHHY2013BE119304

PATIENT
  Age: 32 Year
  Sex: Female

DRUGS (11)
  1. GILENYA [Suspect]
     Dosage: 0.5 MG, QD
     Route: 048
     Dates: start: 20130418
  2. REMERGON [Suspect]
     Indication: SLEEP DISORDER
     Dates: start: 2013, end: 20131025
  3. SIPRALEXA [Suspect]
     Dates: end: 20131025
  4. NITROFURANTOIN [Concomitant]
     Dosage: 150 MG, QD
  5. ZOPLICONE [Concomitant]
  6. LYRICA [Concomitant]
     Dosage: 300 MG, BID
  7. MAGNESPASMYL [Concomitant]
     Dates: end: 20131025
  8. SERLAIN [Concomitant]
     Dosage: 50 MG, UNK
  9. BEFACT [Concomitant]
  10. OMNIBIONTA [Concomitant]
  11. TRI MINULET [Concomitant]

REACTIONS (8)
  - Multiple sclerosis relapse [Recovered/Resolved]
  - Weight increased [Recovering/Resolving]
  - Increased appetite [Unknown]
  - Anxiety [Unknown]
  - Hypokinesia [Unknown]
  - Urine output decreased [Unknown]
  - Depression [Unknown]
  - Asthenia [Unknown]
